FAERS Safety Report 7361117-5 (Version None)
Quarter: 2011Q1

REPORT INFORMATION
  Report Type: 
  Country: None (occurrence: None)
  Receive Date: 20110318
  Receipt Date: 20110311
  Transmission Date: 20110831
  Serious: Yes (Hospitalization, Other)
  Sender: FDA-Public Use
  Company Number: US-ROCHE-765364

PATIENT
  Sex: Female

DRUGS (3)
  1. RESTORIL [Concomitant]
  2. KLONOPIN [Suspect]
     Indication: ANXIETY
     Dosage: OTHER INDICATION: PANIC DISORDER AND STRESS-RELATED CONVULSIONS
     Route: 048
     Dates: start: 20070401
  3. RITALIN [Concomitant]

REACTIONS (4)
  - DRUG DOSE OMISSION [None]
  - CONVULSION [None]
  - DRUG SCREEN POSITIVE [None]
  - PANIC ATTACK [None]
